FAERS Safety Report 18214421 (Version 1)
Quarter: 2020Q3

REPORT INFORMATION
  Report Type: Spontaneous
  Country: US (occurrence: US)
  Receive Date: 20200831
  Receipt Date: 20200831
  Transmission Date: 20201103
  Serious: No
  Sender: FDA-Public Use
  Company Number: US-JNJFOC-20200838241

PATIENT
  Sex: Female

DRUGS (4)
  1. TOPAMAX [Suspect]
     Active Substance: TOPIRAMATE
     Indication: BINGE EATING
  2. TOPAMAX [Suspect]
     Active Substance: TOPIRAMATE
     Indication: ALCOHOL USE
     Dosage: SERIAL NUMBER: 30100055465516
     Route: 048
     Dates: start: 202003, end: 2020
  3. TOPAMAX [Suspect]
     Active Substance: TOPIRAMATE
     Indication: ALCOHOL USE
     Dosage: SERIAL NUMBER
     Route: 048
     Dates: start: 202003, end: 2020
  4. TOPAMAX [Suspect]
     Active Substance: TOPIRAMATE
     Indication: BINGE EATING

REACTIONS (3)
  - Off label use [Unknown]
  - Product use in unapproved indication [Unknown]
  - Dyspnoea [Recovered/Resolved]

NARRATIVE: CASE EVENT DATE: 202003
